FAERS Safety Report 18617974 (Version 1)
Quarter: 2020Q4

REPORT INFORMATION
  Report Type: Spontaneous
  Country: US (occurrence: US)
  Receive Date: 20201214
  Receipt Date: 20201214
  Transmission Date: 20210114
  Serious: Yes (Death)
  Sender: FDA-Public Use
  Company Number: None

PATIENT
  Age: 91 Year
  Sex: Female

DRUGS (12)
  1. FOLIC ACID. [Suspect]
     Active Substance: FOLIC ACID
  2. ALBUTEROL. [Suspect]
     Active Substance: ALBUTEROL
  3. CLOPIDOGREL [Suspect]
     Active Substance: CLOPIDOGREL BISULFATE
  4. LOSARTAN. [Concomitant]
     Active Substance: LOSARTAN
  5. ACTEMRA ACTPEN [Suspect]
     Active Substance: TOCILIZUMAB
     Indication: GIANT CELL ARTERITIS
     Route: 058
     Dates: start: 20200917
  6. PERFOROMIST [Concomitant]
     Active Substance: FORMOTEROL FUMARATE DIHYDRATE
  7. BUDESONIDE. [Suspect]
     Active Substance: BUDESONIDE
  8. PREDNISONE. [Concomitant]
     Active Substance: PREDNISONE
  9. METOPROL SUC [Concomitant]
  10. ATOVASTATIN [Suspect]
     Active Substance: ATORVASTATIN
  11. INCRUSE ELLIPTA [Concomitant]
     Active Substance: UMECLIDINIUM BROMIDE
  12. INPRATROPIUM [Concomitant]

REACTIONS (1)
  - Death [None]

NARRATIVE: CASE EVENT DATE: 20201211
